FAERS Safety Report 6825369-X (Version None)
Quarter: 2010Q3

REPORT INFORMATION
  Report Type: 
  Country: None (occurrence: None)
  Receive Date: 20100708
  Receipt Date: 20061220
  Transmission Date: 20110219
  Serious: No
  Sender: FDA-Public Use
  Company Number: US-PFIZER INC-2007000949

PATIENT
  Sex: Female
  Weight: 58.97 kg

DRUGS (17)
  1. CHANTIX [Suspect]
     Indication: SMOKING CESSATION THERAPY
     Route: 048
     Dates: start: 20060101, end: 20061201
  2. RISPERDAL [Concomitant]
     Route: 048
  3. TRAZODONE [Concomitant]
     Route: 048
  4. LITHIUM CARBONATE [Concomitant]
     Route: 048
  5. WELLBUTRIN [Concomitant]
     Route: 048
  6. XANAX [Concomitant]
     Route: 048
  7. LEVOTHYROXINE SODIUM [Concomitant]
     Route: 048
  8. ATENOLOL [Concomitant]
     Route: 048
  9. LORTAB [Concomitant]
     Route: 048
  10. DETROL LA [Concomitant]
     Route: 048
  11. MONTELUKAST [Concomitant]
     Route: 048
  12. ZELNORM [Concomitant]
     Route: 048
  13. NEXIUM [Concomitant]
     Route: 048
  14. PROMETHAZINE [Concomitant]
     Route: 048
  15. DURAGESIC-100 [Concomitant]
  16. ESTRADIOL [Concomitant]
     Route: 048
  17. ZYBAN [Concomitant]

REACTIONS (1)
  - DRUG INEFFECTIVE [None]
